FAERS Safety Report 22986817 (Version 2)
Quarter: 2023Q4

REPORT INFORMATION
  Report Type: Spontaneous
  Country: US (occurrence: US)
  Receive Date: 20230926
  Receipt Date: 20231024
  Transmission Date: 20240110
  Serious: No
  Sender: FDA-Public Use
  Company Number: US-PFIZER INC-202300306908

PATIENT
  Age: 8 Year
  Sex: Female
  Weight: 25.4 kg

DRUGS (1)
  1. OXBRYTA [Suspect]
     Active Substance: VOXELOTOR
     Dosage: 900 MG, 1X/DAY
     Route: 048
     Dates: start: 20230703

REACTIONS (3)
  - Weight increased [Unknown]
  - Therapeutic response unexpected [Unknown]
  - Product dose omission issue [Unknown]
